FAERS Safety Report 5357397-8 (Version None)
Quarter: 2007Q2

REPORT INFORMATION
  Report Type: 
  Country: None (occurrence: None)
  Receive Date: 20070612
  Receipt Date: 20070612
  Transmission Date: 20071010
  Serious: Yes (Hospitalization)
  Sender: FDA-Public Use
  Company Number: None

PATIENT
  Age: 57 Year
  Sex: Male
  Weight: 87.7 kg

DRUGS (1)
  1. RAPAMYCIN [Suspect]
     Indication: PANCREATIC CARCINOMA METASTATIC
     Dosage: 5 MG DAILY PO
     Route: 048
     Dates: start: 20070501, end: 20070529

REACTIONS (3)
  - FAILURE TO THRIVE [None]
  - HYPOTENSION [None]
  - INTERNATIONAL NORMALISED RATIO INCREASED [None]
